FAERS Safety Report 21846824 (Version 2)
Quarter: 2023Q2

REPORT INFORMATION
  Report Type: Report from Study
  Country: US (occurrence: US)
  Receive Date: 20230111
  Receipt Date: 20230530
  Transmission Date: 20230721
  Serious: Yes (Hospitalization, Other)
  Sender: FDA-Public Use
  Company Number: US-TAKEDA-2023TUS003074

PATIENT
  Sex: Female

DRUGS (2)
  1. HUMAN IMMUNOGLOBULIN G [Suspect]
     Active Substance: HUMAN IMMUNOGLOBULIN G
     Indication: Immunodeficiency common variable
     Dosage: UNK
     Route: 058
  2. HUMAN IMMUNOGLOBULIN G [Suspect]
     Active Substance: HUMAN IMMUNOGLOBULIN G
     Dosage: 26 GRAM, 1/WEEK
     Route: 050

REACTIONS (9)
  - Haemophagocytic lymphohistiocytosis [Unknown]
  - COVID-19 [Unknown]
  - Impaired gastric emptying [Unknown]
  - Mast cell activation syndrome [Unknown]
  - Device related infection [Unknown]
  - Autoimmune neuropathy [Unknown]
  - Ehlers-Danlos syndrome [Unknown]
  - Illness [Unknown]
  - Blood glucose decreased [Unknown]
